FAERS Safety Report 4429296-7 (Version None)
Quarter: 2004Q3

REPORT INFORMATION
  Report Type: 
  Country: None (occurrence: None)
  Receive Date: 20040819
  Receipt Date: 20040804
  Transmission Date: 20050211
  Serious: Yes (Death, Life-Threatening)
  Sender: FDA-Public Use
  Company Number: 200417685GDDC

PATIENT
  Age: 69 Year
  Sex: Female

DRUGS (8)
  1. KETEK [Suspect]
     Indication: OTITIS MEDIA
     Route: 048
     Dates: start: 20040730, end: 20040801
  2. KETEK [Suspect]
     Indication: PHARYNGEAL ERYTHEMA
     Route: 048
     Dates: start: 20040730, end: 20040801
  3. ROCEPHIN [Concomitant]
     Route: 042
  4. GENTAMYCIN SULFATE [Concomitant]
     Route: 042
  5. UREX [Concomitant]
     Indication: HYPERTENSION
     Dosage: DOSE: UNK
     Route: 048
  6. RESERPINE [Concomitant]
     Indication: HYPERTENSION
     Route: 048
  7. METFORMIN HCL [Concomitant]
     Indication: DIABETES MELLITUS
  8. CATACOL [Concomitant]
     Indication: HYPERTENSION
     Route: 048

REACTIONS (11)
  - BLOOD CULTURE POSITIVE [None]
  - CARDIAC ARREST [None]
  - GALLBLADDER DISORDER [None]
  - HYPERGLYCAEMIA [None]
  - HYPERTENSION [None]
  - LOSS OF CONSCIOUSNESS [None]
  - MULTI-ORGAN FAILURE [None]
  - MYDRIASIS [None]
  - RESUSCITATION [None]
  - SEPTIC SHOCK [None]
  - STREPTOCOCCAL INFECTION [None]
